FAERS Safety Report 18381286 (Version 1)
Quarter: 2020Q4

REPORT INFORMATION
  Report Type: Spontaneous
  Country: US (occurrence: US)
  Receive Date: 20201013
  Receipt Date: 20201013
  Transmission Date: 20210114
  Serious: Yes (Hospitalization)
  Sender: FDA-Public Use
  Company Number: None

PATIENT
  Age: 58 Year
  Sex: Male

DRUGS (14)
  1. ACYCLOVIR. [Concomitant]
     Active Substance: ACYCLOVIR
  2. FLUCONAZOLE. [Concomitant]
     Active Substance: FLUCONAZOLE
  3. MAG OXIDE [Concomitant]
     Active Substance: MAGNESIUM OXIDE
  4. SPRYCEL [Suspect]
     Active Substance: DASATINIB
     Indication: ACUTE LYMPHOCYTIC LEUKAEMIA
     Route: 048
     Dates: start: 20200207
  5. FAMOTIDINE. [Concomitant]
     Active Substance: FAMOTIDINE
  6. LOSARTAN POT [Concomitant]
     Active Substance: LOSARTAN POTASSIUM
  7. PREGABALIN. [Concomitant]
     Active Substance: PREGABALIN
  8. SERTALINE [Concomitant]
     Active Substance: SERTRALINE HYDROCHLORIDE
  9. ZOLPIDEM ER [Concomitant]
     Active Substance: ZOLPIDEM TARTRATE
  10. CONTOUR TEST [Concomitant]
  11. FOLIC ACID. [Concomitant]
     Active Substance: FOLIC ACID
  12. HYDROCHLOROT [Concomitant]
     Active Substance: HYDROCHLOROTHIAZIDE
  13. AMLODIPINE [Concomitant]
     Active Substance: AMLODIPINE BESYLATE
  14. SMZ/TMP DS [Concomitant]
     Active Substance: SULFAMETHOXAZOLE\TRIMETHOPRIM

REACTIONS (1)
  - Knee arthroplasty [None]

NARRATIVE: CASE EVENT DATE: 20201002
